FAERS Safety Report 25289370 (Version 1)
Quarter: 2025Q2

REPORT INFORMATION
  Report Type: Spontaneous
  Country: KG (occurrence: KG)
  Receive Date: 20250509
  Receipt Date: 20250509
  Transmission Date: 20250716
  Serious: Yes (Disabling, Other)
  Sender: GLAXOSMITHKLINE
  Company Number: KG-GSK-KG2025051569

PATIENT

DRUGS (2)
  1. DOLUTEGRAVIR [Suspect]
     Active Substance: DOLUTEGRAVIR
     Indication: HIV infection
     Dates: start: 202101
  2. ABACAVIR SULFATE\LAMIVUDINE [Suspect]
     Active Substance: ABACAVIR SULFATE\LAMIVUDINE
     Indication: HIV infection
     Dates: start: 202201

REACTIONS (5)
  - Bone giant cell tumour benign [Unknown]
  - Osteosclerosis [Not Recovered/Not Resolved]
  - Exostosis [Not Recovered/Not Resolved]
  - Fibrosis [Unknown]
  - Synovitis [Unknown]
